FAERS Safety Report 4991483-7 (Version None)
Quarter: 2006Q2

REPORT INFORMATION
  Report Type: 
  Country: None (occurrence: None)
  Receive Date: 20060504
  Receipt Date: 20060425
  Transmission Date: 20061013
  Serious: Yes (Hospitalization)
  Sender: FDA-Public Use
  Company Number: DE-JNJFOC-20060405942

PATIENT
  Age: 52 Year
  Sex: Female

DRUGS (8)
  1. REMICADE [Suspect]
     Route: 042
  2. REMICADE [Suspect]
     Indication: RHEUMATOID ARTHRITIS
     Route: 042
  3. DICLOFENAC SODIUM [Concomitant]
     Dosage: OVERDOSED
     Route: 048
  4. AZATHIOPRINE [Concomitant]
  5. PREGABALIN [Concomitant]
  6. ST JOHNS WORT [Concomitant]
     Indication: DEPRESSION
     Route: 048
  7. CALCIUM CARBONATE [Concomitant]
     Indication: OSTEOPOROSIS PROPHYLAXIS
  8. CHOLECALCIFEROLE [Concomitant]
     Indication: OSTEOPOROSIS PROPHYLAXIS

REACTIONS (7)
  - APNOEA [None]
  - BRADYCARDIA [None]
  - CIRCULATORY COLLAPSE [None]
  - DEPRESSED LEVEL OF CONSCIOUSNESS [None]
  - INFUSION RELATED REACTION [None]
  - MUSCLE SPASMS [None]
  - SUPRAVENTRICULAR EXTRASYSTOLES [None]
